FAERS Safety Report 9198310 (Version 3)
Quarter: 2013Q2

REPORT INFORMATION
  Report Type: Spontaneous
  Country: US (occurrence: US)
  Receive Date: 20130329
  Receipt Date: 20130515
  Transmission Date: 20140414
  Serious: No
  Sender: FDA-Public Use
  Company Number: US-BIOGENIDEC-2013BI028372

PATIENT
  Age: 44 Year
  Sex: Female

DRUGS (2)
  1. TYSABRI [Suspect]
     Indication: MULTIPLE SCLEROSIS
     Route: 042
     Dates: start: 20110131, end: 20130125
  2. AVONEX [Concomitant]
     Indication: MULTIPLE SCLEROSIS
     Route: 030

REACTIONS (12)
  - Neurological symptom [Unknown]
  - Rash [Unknown]
  - Night sweats [Unknown]
  - Weight increased [Recovered/Resolved]
  - Cystopexy [Unknown]
  - Urinary tract disorder [Unknown]
  - Muscle spasms [Unknown]
  - Renal disorder [Unknown]
  - Lung disorder [Unknown]
  - Respiratory disorder [Unknown]
  - Lower respiratory tract infection [Unknown]
  - Dermatitis [Unknown]
